FAERS Safety Report 8238643-X (Version None)
Quarter: 2012Q1

REPORT INFORMATION
  Report Type: 
  Country: None (occurrence: None)
  Receive Date: 20120327
  Receipt Date: 20120320
  Transmission Date: 20120608
  Serious: Yes (Hospitalization)
  Sender: FDA-Public Use
  Company Number: GB-B.I. PHARMACEUTICALS,INC./RIDGEFIELD-2012-UK-00370UK

PATIENT
  Sex: Male

DRUGS (1)
  1. TRAJENTA [Suspect]
     Dosage: 5 MG

REACTIONS (1)
  - JAUNDICE [None]
